FAERS Safety Report 25777874 (Version 1)
Quarter: 2025Q3

REPORT INFORMATION
  Report Type: Spontaneous
  Country: CA (occurrence: CA)
  Receive Date: 20250909
  Receipt Date: 20250909
  Transmission Date: 20251020
  Serious: Yes (Disabling, Other)
  Sender: ASSERTIO THERAPEUTICS
  Company Number: CA-ASSERTIO THERAPEUTICS, INC.-CA-2025AST000417

PATIENT

DRUGS (1)
  1. DICLOFENAC POTASSIUM [Suspect]
     Active Substance: DICLOFENAC POTASSIUM
     Indication: Product used for unknown indication
     Dosage: 50 MILLIGRAM, EVERY 5 DAYS
     Route: 065

REACTIONS (11)
  - Sacroiliitis [Unknown]
  - Joint swelling [Unknown]
  - Neck pain [Unknown]
  - Back pain [Unknown]
  - Ankylosing spondylitis [Unknown]
  - Musculoskeletal stiffness [Unknown]
  - Arthralgia [Unknown]
  - Abdominal discomfort [Unknown]
  - Discomfort [Unknown]
  - Fatigue [Unknown]
  - Therapeutic response decreased [Unknown]
